FAERS Safety Report 10531188 (Version 4)
Quarter: 2015Q1

REPORT INFORMATION
  Report Type: Report from Study
  Country: US (occurrence: US)
  Receive Date: 20141021
  Receipt Date: 20150212
  Transmission Date: 20150720
  Serious: Yes (Hospitalization, Other)
  Sender: FDA-Public Use
  Company Number: US-BRISTOL-MYERS SQUIBB COMPANY-21504592

PATIENT
  Age: 52 Year
  Sex: Male
  Weight: 135.69 kg

DRUGS (3)
  1. IPILIMUMAB [Suspect]
     Active Substance: IPILIMUMAB
     Indication: BLADDER CANCER
     Dosage: 1383 MG, UNK
     Route: 042
     Dates: start: 20140807
  2. BRIPLATIN [Suspect]
     Active Substance: CISPLATIN
     Indication: BLADDER CANCER
     Dosage: 178 MG, UNK
     Route: 042
     Dates: start: 20140626
  3. GEMZAR [Suspect]
     Active Substance: GEMCITABINE HYDROCHLORIDE
     Indication: BLADDER CANCER
     Dosage: 2000 MG, UNK
     Route: 042
     Dates: start: 20140626

REACTIONS (4)
  - Renal failure [Recovering/Resolving]
  - Pneumonia [Recovered/Resolved]
  - Anaemia [Recovered/Resolved]
  - Upper gastrointestinal haemorrhage [Unknown]

NARRATIVE: CASE EVENT DATE: 20141009
